FAERS Safety Report 7928749-4 (Version None)
Quarter: 2011Q4

REPORT INFORMATION
  Report Type: 
  Country: None (occurrence: None)
  Receive Date: 20111118
  Receipt Date: 20111116
  Transmission Date: 20120403
  Serious: Yes (Hospitalization)
  Sender: FDA-Public Use
  Company Number: US-B.I. PHARMACEUTICALS,INC./RIDGEFIELD-2011-BP-26334BP

PATIENT
  Sex: Male

DRUGS (5)
  1. METFORMIN HCL [Concomitant]
  2. PRADAXA [Suspect]
     Indication: ATRIAL FIBRILLATION
     Dates: end: 20111110
  3. METRONIDAZOLE [Concomitant]
  4. SOTALOL HCL [Concomitant]
  5. RAMIPRIL [Concomitant]

REACTIONS (1)
  - UNRESPONSIVE TO STIMULI [None]
